FAERS Safety Report 19710685 (Version 3)
Quarter: 2022Q1

REPORT INFORMATION
  Report Type: Spontaneous
  Country: CZ (occurrence: CZ)
  Receive Date: 20210816
  Receipt Date: 20220228
  Transmission Date: 20220423
  Serious: Yes (Life-Threatening, Hospitalization, Other)
  Sender: FDA-Public Use
  Company Number: CZ-MYLANLABS-2021M1050409

PATIENT
  Age: 37 Year
  Sex: Male

DRUGS (5)
  1. ATOMOXETINE [Suspect]
     Active Substance: ATOMOXETINE
     Indication: Attention deficit hyperactivity disorder
     Dosage: 40 MILLIGRAM, (40 MG)
  2. ATOMOXETINE [Suspect]
     Active Substance: ATOMOXETINE
     Dosage: 80 MILLIGRAM, (80 MG)
  3. ATOMOXETINE [Suspect]
     Active Substance: ATOMOXETINE
     Dosage: 60 MILLIGRAM, QD (60 MG DAILY)
  4. ATOMOXETINE [Suspect]
     Active Substance: ATOMOXETINE
     Dosage: 70 MILLIGRAM, QD (70 MG DAILY (60 MG+10MG TABLET))
  5. VENLAFAXINE HYDROCHLORIDE [Concomitant]
     Active Substance: VENLAFAXINE HYDROCHLORIDE
     Indication: Mixed anxiety and depressive disorder
     Dosage: UNK
     Route: 065

REACTIONS (11)
  - Treatment noncompliance [Unknown]
  - Suicidal behaviour [Unknown]
  - Therapeutic product effect incomplete [Unknown]
  - Drug effect less than expected [Unknown]
  - Suicidal ideation [Recovered/Resolved]
  - Discomfort [Recovered/Resolved]
  - Nausea [Recovered/Resolved]
  - Therapeutic product effect decreased [Unknown]
  - Feeling abnormal [Recovered/Resolved]
  - Tension [Recovered/Resolved]
  - Off label use [Unknown]
